FAERS Safety Report 25165804 (Version 1)
Quarter: 2025Q2

REPORT INFORMATION
  Report Type: Spontaneous
  Country: US (occurrence: US)
  Receive Date: 20250407
  Receipt Date: 20250407
  Transmission Date: 20250716
  Serious: No
  Sender: ELI LILLY AND CO
  Company Number: US-ELI_LILLY_AND_COMPANY-US202504001893

PATIENT
  Age: 36 Year
  Sex: Female

DRUGS (1)
  1. REYVOW [Suspect]
     Active Substance: LASMIDITAN
     Indication: Product used for unknown indication
     Route: 065

REACTIONS (6)
  - Post-acute COVID-19 syndrome [Unknown]
  - Headache [Unknown]
  - Memory impairment [Unknown]
  - Illness [Unknown]
  - Disturbance in attention [Unknown]
  - Fatigue [Unknown]

NARRATIVE: CASE EVENT DATE: 20220224
